FAERS Safety Report 9746891 (Version 2)
Quarter: 2014Q1

REPORT INFORMATION
  Report Type: Report from Study
  Country: US (occurrence: US)
  Receive Date: 20131211
  Receipt Date: 20140110
  Transmission Date: 20141002
  Serious: Yes (Other)
  Sender: FDA-Public Use
  Company Number: US-BAXTER-2013BAX048811

PATIENT
  Age: 67 Year
  Sex: Female
  Weight: 68.1 kg

DRUGS (6)
  1. GAMMAGARD LIQUID [Suspect]
     Indication: IMMUNODEFICIENCY
     Route: 058
     Dates: start: 20130809
  2. PROPRANOLOL [Concomitant]
     Indication: TREMOR
     Route: 048
     Dates: start: 2010
  3. ATORVASTATIN [Concomitant]
     Indication: BLOOD CHOLESTEROL INCREASED
     Route: 048
     Dates: start: 2000
  4. TRIAMTERNE [Concomitant]
     Indication: SWELLING
     Dosage: 37.5
     Route: 048
     Dates: start: 2000
  5. PREMARIN [Concomitant]
     Indication: HORMONE REPLACEMENT THERAPY
     Dosage: .3
     Route: 048
     Dates: start: 1970
  6. SERTRALINE [Concomitant]
     Indication: AFFECTIVE DISORDER
     Route: 048
     Dates: start: 2011

REACTIONS (4)
  - Sinusitis [Recovered/Resolved]
  - Bronchitis [Recovered/Resolved]
  - Sinusitis [Recovered/Resolved]
  - Bronchitis [Recovered/Resolved]
